FAERS Safety Report 9385761 (Version 1)
Quarter: 2013Q3

REPORT INFORMATION
  Report Type: Spontaneous
  Country: IT (occurrence: IT)
  Receive Date: 20130705
  Receipt Date: 20130705
  Transmission Date: 20140515
  Serious: Yes (Hospitalization)
  Sender: FDA-Public Use
  Company Number: PHHY2013IT070077

PATIENT
  Sex: Male

DRUGS (2)
  1. GLIVEC [Suspect]
     Indication: NEUROFIBROMATOSIS
     Dosage: 300 MG, BID
     Route: 048
     Dates: start: 20121115
  2. GLIVEC [Suspect]
     Dosage: 400 MG, BID
     Route: 048
     Dates: start: 201212, end: 20130609

REACTIONS (4)
  - Duodenitis [Recovering/Resolving]
  - Abdominal pain upper [Recovering/Resolving]
  - Syncope [Recovering/Resolving]
  - Gastric ulcer haemorrhage [Recovering/Resolving]
